FAERS Safety Report 17673240 (Version 5)
Quarter: 2020Q4

REPORT INFORMATION
  Report Type: Report from Study
  Country: US (occurrence: US)
  Receive Date: 20200415
  Receipt Date: 20201211
  Transmission Date: 20210113
  Serious: No
  Sender: FDA-Public Use
  Company Number: NVSC2020US101444

PATIENT
  Sex: Female

DRUGS (3)
  1. COSENTYX [Suspect]
     Active Substance: SECUKINUMAB
     Route: 058
  2. COSENTYX [Suspect]
     Active Substance: SECUKINUMAB
     Dosage: 150 MG, QMO
     Route: 058
  3. COSENTYX [Suspect]
     Active Substance: SECUKINUMAB
     Indication: PSORIATIC ARTHROPATHY
     Dosage: 150 MG, QMO
     Route: 058
     Dates: start: 201906

REACTIONS (11)
  - Tooth disorder [Unknown]
  - Fungal infection [Unknown]
  - Rash [Recovered/Resolved with Sequelae]
  - Malaise [Unknown]
  - Myalgia [Unknown]
  - Peripheral swelling [Unknown]
  - Psoriasis [Recovered/Resolved with Sequelae]
  - Erythema [Unknown]
  - Back pain [Unknown]
  - Rash [Unknown]
  - Skin fissures [Unknown]
